FAERS Safety Report 12361042 (Version 2)
Quarter: 2016Q2

REPORT INFORMATION
  Report Type: Spontaneous
  Country: US (occurrence: US)
  Receive Date: 20160512
  Receipt Date: 20160526
  Transmission Date: 20160815
  Serious: Yes (Hospitalization)
  Sender: FDA-Public Use
  Company Number: US-IMPAX LABORATORIES, INC-2016-IPXL-00500

PATIENT
  Age: 79 Year
  Sex: Female
  Weight: 50 kg

DRUGS (5)
  1. AMANTADINE [Suspect]
     Active Substance: AMANTADINE
     Dosage: 100 MG, 1 /DAY
     Route: 048
     Dates: start: 20150616
  2. AZILECT [Concomitant]
     Active Substance: RASAGILINE MESYLATE
     Indication: PARKINSON^S DISEASE
     Dosage: 1 MG, 1 /DAY
     Route: 048
     Dates: start: 201212
  3. RYTARY [Suspect]
     Active Substance: CARBIDOPA\LEVODOPA
     Indication: PARKINSON^S DISEASE
     Dosage: 6 CAPSULES DAILY
     Route: 048
     Dates: start: 20150803, end: 20160428
  4. RYTARY [Suspect]
     Active Substance: CARBIDOPA\LEVODOPA
     Dosage: 9 CAPSULES DAILY
     Route: 048
     Dates: start: 20160428
  5. AMANTADINE [Suspect]
     Active Substance: AMANTADINE
     Indication: PARKINSON^S DISEASE
     Dosage: 100 MG, 2 /DAY
     Route: 048
     Dates: start: 2012

REACTIONS (3)
  - Balance disorder [Recovered/Resolved]
  - Fall [Recovered/Resolved]
  - Dizziness [Recovered/Resolved]

NARRATIVE: CASE EVENT DATE: 20160301
